FAERS Safety Report 5532795-8 (Version None)
Quarter: 2007Q4

REPORT INFORMATION
  Report Type: 
  Country: None (occurrence: None)
  Receive Date: 20071129
  Receipt Date: 20071114
  Transmission Date: 20080405
  Serious: Yes (Disabling, Other)
  Sender: FDA-Public Use
  Company Number: APP200700073

PATIENT
  Age: 56 Year
  Sex: Male

DRUGS (2)
  1. CYANOCOBALAMIN INJ [Suspect]
     Indication: DRUG USE FOR UNKNOWN INDICATION
     Dosage: INJECTION
     Dates: start: 20000101, end: 20070101
  2. PREDNISONE [Suspect]
     Indication: CHRONIC INFLAMMATORY DEMYELINATING POLYRADICULONEUROPATHY
     Dates: start: 20051003, end: 20051101

REACTIONS (13)
  - BLINDNESS [None]
  - BLOOD DISORDER [None]
  - BONE MARROW DISORDER [None]
  - CHRONIC INFLAMMATORY DEMYELINATING POLYRADICULONEUROPATHY [None]
  - DEAFNESS [None]
  - HALLUCINATION [None]
  - ILL-DEFINED DISORDER [None]
  - PAIN [None]
  - PANIC DISORDER [None]
  - RENAL FAILURE [None]
  - SKIN LESION [None]
  - SLEEP TERROR [None]
  - THYROID DISORDER [None]
